FAERS Safety Report 6789889-9 (Version None)
Quarter: 2010Q2

REPORT INFORMATION
  Report Type: 
  Country: None (occurrence: None)
  Receive Date: 20100624
  Receipt Date: 20100623
  Transmission Date: 20101027
  Serious: Yes (Other)
  Sender: FDA-Public Use
  Company Number: US-JNJFOC-20100510188

PATIENT
  Sex: Female
  Weight: 83.92 kg

DRUGS (9)
  1. LEVAQUIN [Suspect]
     Indication: DRUG USE FOR UNKNOWN INDICATION
     Route: 048
  2. LEVAQUIN [Suspect]
     Route: 048
  3. COUMADIN [Concomitant]
     Indication: DRUG USE FOR UNKNOWN INDICATION
  4. ATENOLOL [Concomitant]
     Indication: DRUG USE FOR UNKNOWN INDICATION
  5. MILK THISTLE [Concomitant]
     Indication: DRUG USE FOR UNKNOWN INDICATION
  6. VITAMIN TAB [Concomitant]
     Indication: DRUG USE FOR UNKNOWN INDICATION
  7. HERBAL MEDICATIONS [Concomitant]
     Indication: DRUG USE FOR UNKNOWN INDICATION
  8. AMOXICILLIN [Concomitant]
  9. AMINO ACIDS [Concomitant]

REACTIONS (9)
  - ADVERSE EVENT [None]
  - ARRHYTHMIA [None]
  - CONTRAINDICATION TO MEDICAL TREATMENT [None]
  - CORONARY ARTERIAL STENT INSERTION [None]
  - FIBROMA [None]
  - INCORRECT DOSE ADMINISTERED [None]
  - INSOMNIA [None]
  - MOUTH CYST [None]
  - TOOTH EXTRACTION [None]
